FAERS Safety Report 17367746 (Version 1)
Quarter: 2020Q1

REPORT INFORMATION
  Report Type: Spontaneous
  Country: US (occurrence: US)
  Receive Date: 20200203
  Receipt Date: 20200203
  Transmission Date: 20200409
  Serious: Yes (Disabling)
  Sender: FDA-Public Use
  Company Number: None

PATIENT
  Age: 68 Year
  Sex: Female
  Weight: 69.75 kg

DRUGS (2)
  1. LEVOFLOXACIN. [Suspect]
     Active Substance: LEVOFLOXACIN
     Indication: DIVERTICULITIS
     Route: 048
     Dates: start: 20191116, end: 20191123
  2. SIMVASTATIN 20 MG DAILY [Concomitant]
     Dates: start: 20110211

REACTIONS (3)
  - Pain [None]
  - Sleep disorder [None]
  - Myalgia [None]

NARRATIVE: CASE EVENT DATE: 20191116
